FAERS Safety Report 20298818 (Version 1)
Quarter: 2022Q1

REPORT INFORMATION
  Report Type: Spontaneous
  Country: DE (occurrence: DE)
  Receive Date: 20220105
  Receipt Date: 20220105
  Transmission Date: 20220423
  Serious: Yes (Hospitalization)
  Sender: FDA-Public Use
  Company Number: DE-ADRED-06877-01

PATIENT
  Age: 89 Year
  Sex: Male

DRUGS (17)
  1. PREDNISOLONE [Suspect]
     Active Substance: PREDNISOLONE
     Dosage: .25 DOSAGE FORMS DAILY; 20 MG, 0.25-0-0-0
     Route: 048
  2. DABIGATRAN [Suspect]
     Active Substance: DABIGATRAN
     Dosage: 220 MILLIGRAM DAILY;  1-0-1-0
     Route: 048
  3. Magnesiumcitrat/Magnesiumglutamat [Concomitant]
     Dosage: 1 DOSAGE FORMS DAILY; 0-0-1-0,
     Route: 048
  4. VERAPAMIL [Concomitant]
     Active Substance: VERAPAMIL HYDROCHLORIDE
     Dosage: 240 MILLIGRAM DAILY; 1-0-1-0
     Route: 048
  5. METAMIZOL [Concomitant]
     Active Substance: METAMIZOLE SODIUM
     Dosage: 500 MG / ML, UP TO THREE TIMES A DAY, TWENTY DROPS,
     Route: 048
  6. Alendronic acid / calcium / colecalciferol (vitamin D) [Concomitant]
     Dosage: 1 DOSAGE FORMS DAILY; 1-0-0-0,
     Route: 048
  7. PANTOPRAZOLE SODIUM [Concomitant]
     Active Substance: PANTOPRAZOLE SODIUM
     Dosage: 40 MILLIGRAM DAILY; 1-0-0-0
     Route: 048
  8. Macrogol / Potassium Chloride / Sodium Carbonate / Sodium Chloride [Concomitant]
     Dosage: IF NECESSARY
     Route: 048
  9. TIOTROPIUM BROMIDE [Concomitant]
     Active Substance: TIOTROPIUM BROMIDE
     Dosage: 2 DOSAGE FORMS DAILY; 2-0-0-0,
     Route: 055
  10. TORSEMIDE [Concomitant]
     Active Substance: TORSEMIDE
     Dosage: 10 MILLIGRAM DAILY; 1-0-0-0
     Route: 048
  11. Fluticason/Salmeterol [Concomitant]
     Dosage: 2 DOSAGE FORMS DAILY; 500|50 UG, 1-0-1-0,
     Route: 055
  12. NALOXONE HYDROCHLORIDE\TILIDINE HYDROCHLORIDE [Concomitant]
     Active Substance: NALOXONE HYDROCHLORIDE\TILIDINE HYDROCHLORIDE
     Dosage: TAPERED OFF TABLETS
     Route: 048
  13. TAMSULOSIN [Concomitant]
     Active Substance: TAMSULOSIN
     Dosage: .4 MILLIGRAM DAILY;  0-0-1-0
     Route: 048
  14. ACETYLCYSTEINE [Concomitant]
     Active Substance: ACETYLCYSTEINE
     Dosage: 600 MILLIGRAM DAILY; 1-0-0-0
     Route: 048
  15. MONTELUKAST [Concomitant]
     Active Substance: MONTELUKAST SODIUM
     Dosage: 1 DOSAGE FORMS DAILY; 0-0-1-0
     Route: 048
  16. FENOTEROL [Concomitant]
     Active Substance: FENOTEROL
     Dosage: 100 UG, IF NECESSARY UP TO THREE TIMES A DAY TWO STROKES
     Route: 055
  17. DIGITOXIN [Concomitant]
     Active Substance: DIGITOXIN
     Dosage: .07 MILLIGRAM DAILY; 1-0-0-0
     Route: 048

REACTIONS (1)
  - Haematuria [Unknown]

NARRATIVE: CASE EVENT DATE: 20210521
